FAERS Safety Report 20495792 (Version 1)
Quarter: 2022Q1

REPORT INFORMATION
  Report Type: Report from Study
  Country: US (occurrence: US)
  Receive Date: 20220221
  Receipt Date: 20220221
  Transmission Date: 20220423
  Serious: Yes (Hospitalization)
  Sender: FDA-Public Use
  Company Number: US-SERVIER-S21014478

PATIENT

DRUGS (19)
  1. PEGASPARGASE [Suspect]
     Active Substance: PEGASPARGASE
     Indication: Acute lymphocytic leukaemia
     Dosage: 2500 IU/M2, ON D15
     Route: 042
     Dates: start: 20210716
  2. PEGASPARGASE [Suspect]
     Active Substance: PEGASPARGASE
     Dosage: 2500 IU/M2 IV DAYS 4, 43
     Route: 042
     Dates: start: 20211122
  3. VINCRISTINE SULFATE [Suspect]
     Active Substance: VINCRISTINE SULFATE
     Indication: Acute lymphocytic leukaemia
     Dosage: 2 MG, D15 AND D22
     Route: 042
     Dates: start: 20210716
  4. VINCRISTINE SULFATE [Suspect]
     Active Substance: VINCRISTINE SULFATE
     Dosage: 1.5 MG/M2/DOSE DAYS 1,8,15,43,50
     Route: 042
     Dates: start: 20211203
  5. CYCLOPHOSPHAMIDE [Suspect]
     Active Substance: CYCLOPHOSPHAMIDE
     Indication: Acute lymphocytic leukaemia
     Dosage: 1530 MG, D29
     Route: 042
     Dates: start: 20210702
  6. CYCLOPHOSPHAMIDE [Suspect]
     Active Substance: CYCLOPHOSPHAMIDE
     Dosage: 1000 MG/M2/DOSE IV DAY 29
     Route: 042
     Dates: start: 202112
  7. CYTARABINE [Suspect]
     Active Substance: CYTARABINE
     Indication: Acute lymphocytic leukaemia
     Dosage: 115 MG, D29-32 AND D36-39
     Route: 058
     Dates: start: 20210702
  8. CYTARABINE [Suspect]
     Active Substance: CYTARABINE
     Dosage: 75 MG/M2/DOSE IV DAYS 29-32 AND 36-39
     Route: 058
     Dates: start: 20220102
  9. THIOGUANINE [Suspect]
     Active Substance: THIOGUANINE
     Indication: Acute lymphocytic leukaemia
     Dosage: 640 MG, D29-D42
     Route: 048
     Dates: start: 20210716
  10. THIOGUANINE [Suspect]
     Active Substance: THIOGUANINE
     Dosage: (60 MG/M2/DOSE ORAL DAYS 29-42
     Route: 048
     Dates: start: 20220105
  11. DEXAMETHASONE [Suspect]
     Active Substance: DEXAMETHASONE
     Indication: Acute lymphocytic leukaemia
     Dosage: 8 MG, BID, FOR 7 DAYS
     Route: 048
     Dates: start: 20211119
  12. TN UNSPECIFIED [Concomitant]
     Indication: Acute lymphocytic leukaemia
     Dosage: 75 MG, BID, D1 TO D14
     Route: 048
     Dates: start: 20210702
  13. TN UNSPECIFIED [Concomitant]
     Dosage: 75 MG ORAL BID DAYS 1-14 AND 29-42
     Route: 048
     Dates: start: 20220105
  14. TN UNSPECIFIED [Concomitant]
     Indication: Acute lymphocytic leukaemia
     Dosage: 38 MG, EVERY 1 WEEK
     Route: 042
     Dates: start: 20211119
  15. LEUCOVORIN CALCIUM [Concomitant]
     Active Substance: LEUCOVORIN CALCIUM
     Indication: Acute lymphocytic leukaemia
     Dosage: UNK
     Route: 042
  16. TN UNSPECIFIED [Concomitant]
     Indication: Acute lymphocytic leukaemia
     Dosage: 15 MG, D1, D8, D15 AND D22
     Route: 037
     Dates: start: 20210702
  17. TN UNSPECIFIED [Concomitant]
     Dosage: 7500 MG
     Route: 042
     Dates: start: 20210910
  18. TN UNSPECIFIED [Concomitant]
     Dosage: 15 MG IT DAYS 1,29,36
     Route: 037
     Dates: start: 20211230
  19. TN UNSPECIFIED [Concomitant]
     Indication: Acute lymphocytic leukaemia
     Dosage: 60 MG/M2
     Route: 048
     Dates: start: 20210716

REACTIONS (4)
  - Pancreatitis [Recovered/Resolved]
  - Nausea [Not Recovered/Not Resolved]
  - Vomiting [Recovered/Resolved]
  - Febrile neutropenia [Recovered/Resolved]

NARRATIVE: CASE EVENT DATE: 20211208
